FAERS Safety Report 5656963-X (Version None)
Quarter: 2008Q1

REPORT INFORMATION
  Report Type: 
  Country: None (occurrence: None)
  Receive Date: 20080310
  Receipt Date: 20080307
  Transmission Date: 20080703
  Serious: Yes (Other)
  Sender: FDA-Public Use
  Company Number: A0714355A

PATIENT
  Age: 88 Year
  Sex: Male

DRUGS (5)
  1. LAPATINIB [Suspect]
     Dosage: 1500MG PER DAY
     Route: 048
     Dates: start: 20080214
  2. METOPROLOL TARTRATE [Concomitant]
  3. MAGNESIUM CITRATE [Concomitant]
     Dates: start: 20080212
  4. CLINDAMYCIN HCL [Concomitant]
     Dates: start: 20080125, end: 20080217
  5. CEPHALEXIN [Concomitant]
     Dates: start: 20080114

REACTIONS (7)
  - BLOOD CREATININE INCREASED [None]
  - DEHYDRATION [None]
  - DIARRHOEA [None]
  - DIZZINESS [None]
  - HYPONATRAEMIA [None]
  - ORTHOSTATIC HYPOTENSION [None]
  - URINARY TRACT INFECTION [None]
